FAERS Safety Report 12744767 (Version 2)
Quarter: 2016Q4

REPORT INFORMATION
  Report Type: Spontaneous
  Country: DE (occurrence: DE)
  Receive Date: 20160915
  Receipt Date: 20161223
  Transmission Date: 20170207
  Serious: Yes (Life-Threatening, Other)
  Sender: FDA-Public Use
  Company Number: DE-BAXTER-2016BAX046447

PATIENT
  Age: 18 Year
  Sex: Male
  Weight: 70 kg

DRUGS (15)
  1. ISOFLURAN BAXTER [Suspect]
     Active Substance: ISOFLURANE
     Indication: SEDATION
     Dosage: END TIDAL 0.6 VOL%
     Route: 055
     Dates: start: 20160821, end: 20160821
  2. INSULIN [Concomitant]
     Active Substance: INSULIN NOS
     Indication: PARENTERAL NUTRITION
  3. PANTOZOL [Concomitant]
     Active Substance: PANTOPRAZOLE SODIUM
     Indication: PROPHYLAXIS AGAINST GASTROINTESTINAL ULCER
     Dosage: DAILY DOSE: 40 MG MILLGRAM(S) EVERY DAYS
     Route: 048
     Dates: start: 20160820
  4. TROMETAMOL PUFFER [Concomitant]
     Indication: METABOLIC ACIDOSIS
     Dosage: CONT. 6.3 ML/H
     Route: 042
  5. ISOFLURAN BAXTER [Suspect]
     Active Substance: ISOFLURANE
     Indication: OFF LABEL USE
  6. PROPOFOL. [Suspect]
     Active Substance: PROPOFOL
     Indication: SEDATION
     Route: 065
  7. NOVAMINSULFON [Concomitant]
     Active Substance: METAMIZOLE
     Indication: DIABETIC COMA
     Dosage: 2 IE/H
     Route: 042
     Dates: start: 20160820, end: 20160822
  8. CLEXANE [Concomitant]
     Active Substance: ENOXAPARIN SODIUM
     Indication: THROMBOSIS PROPHYLAXIS
     Dosage: 0.2
     Route: 058
     Dates: start: 20160820
  9. INSULIN [Concomitant]
     Active Substance: INSULIN NOS
     Indication: TYPE 1 DIABETES MELLITUS
     Route: 065
  10. NATRIUMCHLORID [Concomitant]
     Indication: METABOLIC ACIDOSIS
     Dosage: MULTIPLE 100ML
     Route: 042
  11. SODIUM BICARBONATE. [Concomitant]
     Active Substance: SODIUM BICARBONATE
     Indication: METABOLIC ACIDOSIS
     Route: 065
  12. DANTROLENE [Suspect]
     Active Substance: DANTROLENE
     Indication: BODY TEMPERATURE INCREASED
     Route: 040
  13. JONOSTERIL NA [Concomitant]
     Indication: FLUID REPLACEMENT
     Route: 042
  14. AMINOVEN [Concomitant]
     Active Substance: AMINO ACIDS
     Indication: PARENTERAL NUTRITION
     Route: 042
  15. DANTROLENE [Suspect]
     Active Substance: DANTROLENE
     Route: 040

REACTIONS (4)
  - Acidosis [Unknown]
  - Body temperature increased [Recovering/Resolving]
  - Cardiovascular insufficiency [Unknown]
  - Blood sodium abnormal [Unknown]

NARRATIVE: CASE EVENT DATE: 20160821
